FAERS Safety Report 5118343-5 (Version None)
Quarter: 2006Q3

REPORT INFORMATION
  Report Type: 
  Country: None (occurrence: None)
  Receive Date: 20060927
  Receipt Date: 20060905
  Transmission Date: 20061208
  Serious: Yes (Death)
  Sender: FDA-Public Use
  Company Number: 229710

PATIENT
  Age: 68 Year
  Sex: Female
  Weight: 56 kg

DRUGS (7)
  1. AVASTIN [Suspect]
     Indication: COLORECTAL CANCER METASTATIC
     Dosage: 420 MG, Q3W, INTRAVENOUS
     Route: 042
     Dates: start: 20060815
  2. MITOMYCIN [Suspect]
     Indication: COLORECTAL CANCER METASTATIC
     Dates: start: 20060815
  3. XELODA [Suspect]
     Indication: COLORECTAL CANCER METASTATIC
     Dosage: 2000 MG/M2, QD, ORAL
     Route: 048
     Dates: start: 20060815, end: 20060828
  4. LOPERAMIDE [Concomitant]
  5. LIDOCAINE [Concomitant]
  6. NYSTATIN [Concomitant]
  7. PYRIDOXINE HCL [Concomitant]

REACTIONS (2)
  - CAROTID ARTERY STENOSIS [None]
  - EMPHYSEMA [None]
